FAERS Safety Report 4920862-9 (Version None)
Quarter: 2006Q1

REPORT INFORMATION
  Report Type: 
  Country: None (occurrence: None)
  Receive Date: 20060217
  Receipt Date: 20060207
  Transmission Date: 20060701
  Serious: Yes (Other)
  Sender: FDA-Public Use
  Company Number: HQWYE712108FEB06

PATIENT

DRUGS (1)
  1. RAPAMUNE [Suspect]
     Indication: IMMUNOSUPPRESSANT DRUG THERAPY
     Dosage: ADJUSTED TO REACH SERUM LEVELS OF 10 TO 15 NG/ML

REACTIONS (1)
  - FOCAL GLOMERULOSCLEROSIS [None]
